FAERS Safety Report 24732265 (Version 1)
Quarter: 2024Q4

REPORT INFORMATION
  Report Type: Report from Study
  Country: AE (occurrence: AE)
  Receive Date: 20241213
  Receipt Date: 20241213
  Transmission Date: 20250115
  Serious: Yes (Other)
  Sender: BIOVITRUM
  Company Number: AE-AstraZeneca-CH-00761878A

PATIENT
  Sex: Female

DRUGS (1)
  1. SYNAGIS [Suspect]
     Active Substance: PALIVIZUMAB
     Indication: Antiviral prophylaxis
     Dosage: 100 MILLIGRAM, Q4W
     Route: 030

REACTIONS (3)
  - Pyrexia [Unknown]
  - Endocarditis [Unknown]
  - Product dose omission issue [Unknown]
